FAERS Safety Report 7385331-8 (Version None)
Quarter: 2011Q1

REPORT INFORMATION
  Report Type: 
  Country: None (occurrence: None)
  Receive Date: 20110330
  Receipt Date: 20100813
  Transmission Date: 20110831
  Serious: No
  Sender: FDA-Public Use
  Company Number: US-MYLANLABS-2010S1014763

PATIENT
  Age: 59 Year
  Sex: Female
  Weight: 90.72 kg

DRUGS (7)
  1. SPIRONOLACTONE [Concomitant]
     Indication: OEDEMA
  2. PROTONIX [Concomitant]
     Indication: GASTROOESOPHAGEAL REFLUX DISEASE
  3. FISH OIL [Concomitant]
  4. EMSAM [Suspect]
     Indication: DEPRESSION
     Dosage: QD
     Route: 062
     Dates: start: 20060913
  5. DICLOFENAC SODIUM [Concomitant]
     Indication: ARTHRITIS
  6. CARAFATE [Concomitant]
     Indication: GASTROOESOPHAGEAL REFLUX DISEASE
  7. LASIX [Concomitant]
     Indication: FLUID RETENTION

REACTIONS (4)
  - PANIC ATTACK [None]
  - CRYING [None]
  - DRUG EFFECT DECREASED [None]
  - NERVOUSNESS [None]
